FAERS Safety Report 6186163-9 (Version None)
Quarter: 2009Q2

REPORT INFORMATION
  Report Type: 
  Country: None (occurrence: None)
  Receive Date: 20090511
  Receipt Date: 20090505
  Transmission Date: 20091009
  Serious: Yes (Other)
  Sender: FDA-Public Use
  Company Number: US-ASTRAZENECA-2009UW11364

PATIENT
  Age: 77 Year
  Sex: Female
  Weight: 63 kg

DRUGS (3)
  1. CRESTOR [Suspect]
     Route: 048
     Dates: start: 20090101, end: 20090401
  2. CRESTOR [Suspect]
     Route: 048
     Dates: start: 20090401
  3. ASPIRIN [Concomitant]

REACTIONS (7)
  - ABDOMINAL PAIN [None]
  - BLADDER DISORDER [None]
  - HEADACHE [None]
  - MUSCLE DISORDER [None]
  - RENAL DISORDER [None]
  - RHABDOMYOLYSIS [None]
  - URINARY BLADDER HAEMORRHAGE [None]
